FAERS Safety Report 11147438 (Version 1)
Quarter: 2015Q2

REPORT INFORMATION
  Report Type: Spontaneous
  Country: US (occurrence: US)
  Receive Date: 20150529
  Receipt Date: 20150529
  Transmission Date: 20150821
  Serious: No
  Sender: FDA-Public Use
  Company Number: US-NOVEN PHARMACEUTICALS, INC.-US2015000117

PATIENT
  Age: 67 Year
  Sex: Female

DRUGS (1)
  1. MINIVELLE [Suspect]
     Active Substance: ESTRADIOL
     Indication: HYSTERECTOMY
     Dosage: 0.1 MG, UNK
     Route: 062
     Dates: start: 201112

REACTIONS (5)
  - Drug administered at inappropriate site [Unknown]
  - Urinary tract infection [Not Recovered/Not Resolved]
  - Genital rash [Not Recovered/Not Resolved]
  - Feeling abnormal [Unknown]
  - Alopecia [Not Recovered/Not Resolved]
